FAERS Safety Report 24266564 (Version 10)
Quarter: 2024Q4

REPORT INFORMATION
  Report Type: Report from Study
  Country: GB (occurrence: GB)
  Receive Date: 20240830
  Receipt Date: 20241028
  Transmission Date: 20250115
  Serious: Yes (Hospitalization, Other)
  Sender: ABBVIE
  Company Number: GB-ABBVIE-5879130

PATIENT
  Age: 65 Year
  Sex: Male

DRUGS (12)
  1. CARBIDOPA\LEVODOPA [Suspect]
     Active Substance: CARBIDOPA\LEVODOPA
     Indication: Parkinson^s disease
     Dosage: MD: 11.0, CR: 2.0, ED: 1.2, 20MG/5MG
     Route: 050
  2. CARBIDOPA\LEVODOPA [Suspect]
     Active Substance: CARBIDOPA\LEVODOPA
     Dosage: 20MG/5MG, MD:11.0 MLS, CR: 2.0MLS/HR, ED1.0 ML?LAST ADMINISTRATION DATE 2024
     Route: 050
     Dates: start: 20240828
  3. CARBIDOPA\LEVODOPA [Suspect]
     Active Substance: CARBIDOPA\LEVODOPA
     Dosage: CR: 2.4 MLS/HR, ED: 1.5 ML, MD:11.2 MLS?START DATE: 2024
     Route: 050
     Dates: start: 2024, end: 20240904
  4. CARBIDOPA\LEVODOPA [Suspect]
     Active Substance: CARBIDOPA\LEVODOPA
     Dosage: MD: 11.4 CR: 2.5 ED: 1.5,
     Route: 050
     Dates: start: 20240904, end: 20240906
  5. CARBIDOPA\LEVODOPA [Suspect]
     Active Substance: CARBIDOPA\LEVODOPA
     Dosage: CR 3.0 MLS
     Route: 050
     Dates: start: 20240906, end: 20240908
  6. CARBIDOPA\LEVODOPA [Suspect]
     Active Substance: CARBIDOPA\LEVODOPA
     Dosage: MD: 12.2 CR: 3.0 ED: 1.9?LAST ADMIN DATE: SEP 2024
     Route: 050
     Dates: start: 20240908
  7. CARBIDOPA\LEVODOPA [Suspect]
     Active Substance: CARBIDOPA\LEVODOPA
     Dosage: 20MG/5MG, MD:11.0 MLS, CR: 2.0MLS/HR, ED1.0 ML?FIRST ADMIN DATE: 2024
     Route: 050
     Dates: end: 20240828
  8. BENSERAZIDE HYDROCHLORIDE\LEVODOPA [Concomitant]
     Active Substance: BENSERAZIDE HYDROCHLORIDE\LEVODOPA
     Indication: Parkinson^s disease
     Dosage: 25/100MG?FREQUENCY TEXT: 2 AT NIGHT
     Route: 048
  9. BENSERAZIDE HYDROCHLORIDE\LEVODOPA [Concomitant]
     Active Substance: BENSERAZIDE HYDROCHLORIDE\LEVODOPA
     Indication: Parkinson^s disease
     Dosage: 100/25MGS?FREQUENCY TEXT: X2 2200
  10. ROPINIROLE [Concomitant]
     Active Substance: ROPINIROLE
     Indication: Product used for unknown indication
  11. BENSERAZIDE HYDROCHLORIDE\LEVODOPA [Concomitant]
     Active Substance: BENSERAZIDE HYDROCHLORIDE\LEVODOPA
     Indication: Parkinson^s disease
     Dosage: TIME INTERVAL: 0.16666667 DAYS: 25/100MGS,  2 AT 07.00, 09.00, 11.00 AM, 13.00, 15.00.19.00 PM
     Route: 048
     Dates: start: 2024, end: 2024
  12. BENSERAZIDE HYDROCHLORIDE\LEVODOPA [Concomitant]
     Active Substance: BENSERAZIDE HYDROCHLORIDE\LEVODOPA
     Indication: Parkinson^s disease
     Dosage: 100/25MGS X2 TAKEN 3 HOURLY
     Route: 048
     Dates: start: 20240829

REACTIONS (48)
  - International normalised ratio increased [Recovering/Resolving]
  - Freezing phenomenon [Unknown]
  - Stoma site haemorrhage [Not Recovered/Not Resolved]
  - Hypoaesthesia [Not Recovered/Not Resolved]
  - Stoma site infection [Recovered/Resolved]
  - Brain neoplasm [Unknown]
  - Therapeutic product effect incomplete [Unknown]
  - Stoma site pain [Not Recovered/Not Resolved]
  - Stoma site discharge [Not Recovered/Not Resolved]
  - Stoma site erythema [Not Recovered/Not Resolved]
  - Hyperhidrosis [Not Recovered/Not Resolved]
  - Unevaluable event [Not Recovered/Not Resolved]
  - Malaise [Not Recovered/Not Resolved]
  - Vomiting [Recovered/Resolved]
  - Influenza like illness [Unknown]
  - Therapeutic product effect incomplete [Recovered/Resolved]
  - Device issue [Unknown]
  - Tremor [Recovered/Resolved]
  - Wrist surgery [Not Recovered/Not Resolved]
  - Speech disorder [Not Recovered/Not Resolved]
  - Paraesthesia [Not Recovered/Not Resolved]
  - Device alarm issue [Not Recovered/Not Resolved]
  - Arthrodesis [Not Recovered/Not Resolved]
  - Depressed mood [Unknown]
  - Arthralgia [Unknown]
  - Dystonia [Unknown]
  - Muscle rigidity [Unknown]
  - Abnormal dreams [Unknown]
  - Headache [Not Recovered/Not Resolved]
  - Frustration tolerance decreased [Unknown]
  - Neck pain [Unknown]
  - Constipation [Recovered/Resolved]
  - Feeding disorder [Unknown]
  - Vomiting [Not Recovered/Not Resolved]
  - Musculoskeletal stiffness [Not Recovered/Not Resolved]
  - Feeling hot [Unknown]
  - Parosmia [Unknown]
  - Abdominal discomfort [Not Recovered/Not Resolved]
  - Abdominal pain [Not Recovered/Not Resolved]
  - Nausea [Not Recovered/Not Resolved]
  - Feeling abnormal [Not Recovered/Not Resolved]
  - On and off phenomenon [Recovered/Resolved]
  - Therapeutic product effect incomplete [Not Recovered/Not Resolved]
  - Nervousness [Not Recovered/Not Resolved]
  - Stoma site discomfort [Not Recovered/Not Resolved]
  - Device occlusion [Unknown]
  - Device placement issue [Not Recovered/Not Resolved]
  - Stoma site infection [Recovering/Resolving]

NARRATIVE: CASE EVENT DATE: 20240101
